FAERS Safety Report 4957535-2 (Version None)
Quarter: 2006Q1

REPORT INFORMATION
  Report Type: 
  Country: None (occurrence: None)
  Receive Date: 20060330
  Receipt Date: 20060131
  Transmission Date: 20060701
  Serious: No
  Sender: FDA-Public Use
  Company Number: US-GLAXOSMITHKLINE-A0591719A

PATIENT
  Sex: Male

DRUGS (2)
  1. FLOVENT [Suspect]
     Indication: ASTHMA
     Dosage: 2PUFF TWICE PER DAY
     Route: 055
  2. STEROIDS [Concomitant]
     Route: 048
     Dates: start: 20050501

REACTIONS (4)
  - BRONCHITIS [None]
  - LUNG INFILTRATION [None]
  - MOANING [None]
  - WHEEZING [None]
